FAERS Safety Report 4690978-3 (Version None)
Quarter: 2005Q2

REPORT INFORMATION
  Report Type: 
  Country: None (occurrence: None)
  Receive Date: 20050613
  Receipt Date: 20050527
  Transmission Date: 20051028
  Serious: Yes (Disabling, Other)
  Sender: FDA-Public Use
  Company Number: 2005067698

PATIENT
  Age: 70 Year
  Sex: Female
  Weight: 64 kg

DRUGS (2)
  1. LIPITOR [Suspect]
     Indication: HYPERCHOLESTEROLAEMIA
     Dosage: 20 MG (20 MG, 1 IN 1 D), ORAL
     Route: 048
     Dates: start: 20020601, end: 20050426
  2. ACTIVELLE [Concomitant]

REACTIONS (12)
  - BALANCE DISORDER [None]
  - CEREBELLAR ATROPHY [None]
  - CEREBRAL ISCHAEMIA [None]
  - DEAFNESS UNILATERAL [None]
  - DISCOMFORT [None]
  - GAIT DISTURBANCE [None]
  - NYSTAGMUS [None]
  - REFLEXES ABNORMAL [None]
  - TINNITUS [None]
  - VESTIBULAR DISORDER [None]
  - VISUAL ACUITY REDUCED [None]
  - VISUAL DISTURBANCE [None]
